FAERS Safety Report 24242091 (Version 1)
Quarter: 2024Q3

REPORT INFORMATION
  Report Type: Spontaneous
  Country: US (occurrence: US)
  Receive Date: 20240823
  Receipt Date: 20240823
  Transmission Date: 20241017
  Serious: No
  Sender: PL DEVELOPMENTS
  Company Number: US-P+L Developments of Newyork Corporation-2160781

PATIENT

DRUGS (3)
  1. DOCOSANOL [Suspect]
     Active Substance: DOCOSANOL
     Indication: Arthropod bite
  2. DOCOSANOL [Suspect]
     Active Substance: DOCOSANOL
     Indication: Pruritus
  3. DOCOSANOL [Suspect]
     Active Substance: DOCOSANOL
     Indication: Oral herpes

REACTIONS (2)
  - Product use in unapproved indication [Unknown]
  - Drug effective for unapproved indication [Unknown]
